FAERS Safety Report 5602467-X (Version None)
Quarter: 2008Q1

REPORT INFORMATION
  Report Type: 
  Country: None (occurrence: None)
  Receive Date: 20080125
  Receipt Date: 20080116
  Transmission Date: 20080703
  Serious: Yes (Hospitalization)
  Sender: FDA-Public Use
  Company Number: FR-ASTRAZENECA-2008CG00105

PATIENT
  Age: 68 Year
  Sex: Female

DRUGS (4)
  1. TENORMIN [Suspect]
     Route: 048
     Dates: end: 20071106
  2. CRESTOR [Suspect]
     Route: 048
     Dates: end: 20071108
  3. OFLOCET [Suspect]
     Dates: start: 20071104, end: 20071107
  4. AMLOR [Suspect]
     Route: 048
     Dates: start: 20071106, end: 20071109

REACTIONS (2)
  - CHOLESTASIS [None]
  - CYTOLYTIC HEPATITIS [None]
